FAERS Safety Report 7164144-6 (Version None)
Quarter: 2010Q4

REPORT INFORMATION
  Report Type: 
  Country: None (occurrence: None)
  Receive Date: 20101123
  Receipt Date: 20100922
  Transmission Date: 20110411
  Serious: No
  Sender: FDA-Public Use
  Company Number: 015218

PATIENT
  Sex: Female

DRUGS (1)
  1. CIMZIA [Suspect]
     Indication: RHEUMATOID ARTHRITIS
     Dosage: (400 MG 1X/4 WEEKS, INDUCTION DOSE SUBCUTANEOUS)
     Route: 058
     Dates: start: 20100511, end: 20100813

REACTIONS (2)
  - MALAISE [None]
  - NAUSEA [None]
